FAERS Safety Report 6018566-7 (Version None)
Quarter: 2008Q4

REPORT INFORMATION
  Report Type: 
  Country: None (occurrence: None)
  Receive Date: 20081223
  Receipt Date: 20081215
  Transmission Date: 20090506
  Serious: Yes (Hospitalization, Other)
  Sender: FDA-Public Use
  Company Number: JP-ROXANE LABORATORIES, INC.-2008-RO-00422RO

PATIENT
  Age: 51 Year
  Sex: Female

DRUGS (11)
  1. METHOTREXATE [Suspect]
     Indication: STILL'S DISEASE ADULT ONSET
  2. METHOTREXATE [Suspect]
  3. PREDNISOLONE [Suspect]
     Indication: STILL'S DISEASE ADULT ONSET
     Dosage: 5MG
  4. METHYLPREDNISOLONE 16MG TAB [Suspect]
     Indication: STILL'S DISEASE ADULT ONSET
     Dosage: .5G
     Route: 042
  5. BETAMETHASONE [Suspect]
     Indication: STILL'S DISEASE ADULT ONSET
     Dosage: 5MG
     Route: 048
  6. INDOMETHACIN [Suspect]
     Indication: STILL'S DISEASE ADULT ONSET
     Dosage: 75MG
  7. HEPARIN [Concomitant]
     Route: 042
  8. DEXAMETHASONE [Concomitant]
     Dosage: 100MG
     Route: 042
  9. DEXAMETHASONE [Concomitant]
     Dosage: 5MG
     Route: 048
  10. CYCLOSPORINE [Concomitant]
     Dosage: 80MG
     Route: 048
  11. CYCLOSPORINE [Concomitant]
     Dosage: 120MG
     Route: 048

REACTIONS (4)
  - COAGULOPATHY [None]
  - CONDITION AGGRAVATED [None]
  - HEPATIC FAILURE [None]
  - HISTIOCYTOSIS HAEMATOPHAGIC [None]
